FAERS Safety Report 16863284 (Version 1)
Quarter: 2019Q3

REPORT INFORMATION
  Report Type: Spontaneous
  Country: RO (occurrence: RO)
  Receive Date: 20190927
  Receipt Date: 20190927
  Transmission Date: 20191005
  Serious: Yes (Life-Threatening)
  Sender: FDA-Public Use
  Company Number: RO-AMGEN-ROUSP2019156597

PATIENT
  Age: 88 Year
  Sex: Female

DRUGS (8)
  1. ASPENTER [Concomitant]
     Active Substance: ASPIRIN
     Dosage: 75 MILLIGRAM, ONE TABLET AT NOON
  2. PRESTARIUM A [Concomitant]
     Active Substance: PERINDOPRIL ARGININE
     Indication: HYPERTENSION
     Dosage: 5 MILLIGRAM, HALF A TABLET PER DAY, IN THE MORNING
     Route: 048
  3. THIOSSEN [Concomitant]
     Active Substance: .ALPHA.-LIPOIC ACID
     Dosage: 600 MILLIGRAM, QD
     Route: 048
  4. PROLIA [Suspect]
     Active Substance: DENOSUMAB
     Indication: OSTEOPOROSIS
     Dosage: UNK
     Route: 030
     Dates: start: 20190902
  5. CAVINTON [Concomitant]
     Active Substance: VINPOCETINE
     Dosage: UNK, TWO TABLETS PER DAY
     Route: 048
  6. BETALOC [METOPROLOL TARTRATE] [Concomitant]
     Active Substance: METOPROLOL TARTRATE
     Indication: HYPERTENSION
     Dosage: 50 MILLIGRAM, ONE TABLET PER DAY, IN THE EVENING
     Route: 048
  7. ALPHA D3 [Concomitant]
     Active Substance: ALFACALCIDOL
     Indication: OSTEOPOROSIS
     Dosage: 0.5 MICROGRAM, ONE CAPSULE PER DAY
     Route: 048
  8. MILGAMMA [BENFOTIAMINE] [Concomitant]
     Active Substance: BENFOTIAMINE
     Dosage: 1 DOSAGE FORM, BID, IN THE MORNING AND IN THE EVENING
     Route: 048

REACTIONS (2)
  - Pruritus [Not Recovered/Not Resolved]
  - Urticaria [Not Recovered/Not Resolved]

NARRATIVE: CASE EVENT DATE: 20190903
